APPROVED DRUG PRODUCT: CHLOROTHIAZIDE SODIUM
Active Ingredient: CHLOROTHIAZIDE SODIUM
Strength: EQ 500MG BASE/VIAL
Dosage Form/Route: INJECTABLE;INJECTION
Application: A090896 | Product #001 | TE Code: AP
Applicant: FRESENIUS KABI USA LLC
Approved: Oct 16, 2009 | RLD: No | RS: No | Type: RX